FAERS Safety Report 23154933 (Version 1)
Quarter: 2023Q4

REPORT INFORMATION
  Report Type: Spontaneous
  Country: JP (occurrence: JP)
  Receive Date: 20231107
  Receipt Date: 20231107
  Transmission Date: 20240110
  Serious: Yes (Other)
  Sender: FDA-Public Use
  Company Number: JP-BAYER-2023A155489

PATIENT
  Sex: Female

DRUGS (1)
  1. VITRAKVI [Suspect]
     Active Substance: LAROTRECTINIB
     Indication: NTRK gene fusion cancer
     Dosage: UNK UNK, BID
     Route: 048
     Dates: start: 2023

REACTIONS (6)
  - Metastasis [None]
  - Blood pressure increased [None]
  - Vomiting [None]
  - Headache [None]
  - Therapeutic product effect incomplete [None]
  - Inappropriate schedule of product administration [None]

NARRATIVE: CASE EVENT DATE: 20231031
